FAERS Safety Report 9803375 (Version 1)
Quarter: 2014Q1

REPORT INFORMATION
  Report Type: Spontaneous
  Country: US (occurrence: None)
  Receive Date: 20140107
  Receipt Date: 20140107
  Transmission Date: 20141002
  Serious: Yes (Hospitalization)
  Sender: FDA-Public Use
  Company Number: None

PATIENT
  Age: 62 Year
  Sex: 0
  Weight: 73.2 kg

DRUGS (1)
  1. ZOSYN [Suspect]
     Indication: UROSEPSIS
     Route: 042
     Dates: start: 20130405, end: 20130411

REACTIONS (1)
  - Platelet count decreased [None]
